FAERS Safety Report 5661637-5 (Version None)
Quarter: 2008Q1

REPORT INFORMATION
  Report Type: 
  Country: None (occurrence: None)
  Receive Date: 20080312
  Receipt Date: 20080303
  Transmission Date: 20080703
  Serious: Yes (Hospitalization)
  Sender: FDA-Public Use
  Company Number: JP-JNJFOC-20080301622

PATIENT
  Age: 30 Year
  Sex: Male

DRUGS (7)
  1. REMICADE [Suspect]
     Route: 042
  2. REMICADE [Suspect]
     Route: 042
  3. REMICADE [Suspect]
     Indication: CROHN'S DISEASE
     Route: 042
  4. PHENIRAMIN [Concomitant]
     Dosage: DOSE: 5 AMP
  5. PHENIRAMIN [Concomitant]
     Indication: PROPHYLAXIS
     Dosage: DOSE: 5 AMP
  6. PENTASA [Concomitant]
  7. BIOFERMIN [Concomitant]
     Route: 048

REACTIONS (3)
  - BACK PAIN [None]
  - URTICARIA [None]
  - VOMITING [None]
